FAERS Safety Report 8446013-4 (Version None)
Quarter: 2012Q2

REPORT INFORMATION
  Report Type: 
  Country: None (occurrence: None)
  Receive Date: 20120618
  Receipt Date: 20120611
  Transmission Date: 20120825
  Serious: Yes (Death, Hospitalization, Other)
  Sender: FDA-Public Use
  Company Number: US-ROCHE-1077682

PATIENT
  Age: 60 Year
  Sex: Male
  Weight: 66.6 kg

DRUGS (1)
  1. RITUXIMAB [Suspect]
     Indication: CHRONIC LYMPHOCYTIC LEUKAEMIA
     Dosage: STRENGTH: 10 MG/ML.
     Route: 042
     Dates: start: 20120502, end: 20120509

REACTIONS (5)
  - RESPIRATORY FAILURE [None]
  - CHRONIC LYMPHOCYTIC LEUKAEMIA TRANSFORMATION [None]
  - PANCYTOPENIA [None]
  - PNEUMONIA [None]
  - DYSPNOEA [None]
